FAERS Safety Report 13493479 (Version 1)
Quarter: 2017Q2

REPORT INFORMATION
  Report Type: Spontaneous
  Country: US (occurrence: US)
  Receive Date: 20170427
  Receipt Date: 20170427
  Transmission Date: 20170830
  Serious: No
  Sender: FDA-Public Use
  Company Number: US-ROCHE-1058499

PATIENT
  Age: 83 Year
  Sex: Male
  Weight: 80.99 kg

DRUGS (5)
  1. DILTIAZEM. [Concomitant]
     Active Substance: DILTIAZEM
     Route: 048
  2. SLO-NIACIN [Concomitant]
     Active Substance: DIETARY SUPPLEMENT
  3. POTASSIUM CHLORIDE. [Concomitant]
     Active Substance: POTASSIUM CHLORIDE
     Route: 065
  4. ERIVEDGE [Suspect]
     Active Substance: VISMODEGIB
     Indication: BASAL CELL CARCINOMA
     Route: 048
  5. ASA [Concomitant]
     Active Substance: ASPIRIN

REACTIONS (3)
  - Blood phosphorus decreased [Unknown]
  - Hypophosphataemia [Unknown]
  - Myalgia [Unknown]

NARRATIVE: CASE EVENT DATE: 20120406
